FAERS Safety Report 8744235 (Version 2)
Quarter: 2013Q4

REPORT INFORMATION
  Report Type: Spontaneous
  Country: US (occurrence: US)
  Receive Date: 20120824
  Receipt Date: 20131101
  Transmission Date: 20140711
  Serious: No
  Sender: FDA-Public Use
  Company Number: US-009507513-1208USA005711

PATIENT
  Age: 23 Year
  Sex: Male

DRUGS (1)
  1. REMERON [Suspect]
     Indication: INSOMNIA
     Dosage: 1 MG, QD
     Route: 048

REACTIONS (3)
  - Visual impairment [Not Recovered/Not Resolved]
  - Off label use [Unknown]
  - Underdose [Unknown]
